FAERS Safety Report 4556642-6 (Version None)
Quarter: 2005Q1

REPORT INFORMATION
  Report Type: 
  Country: None (occurrence: None)
  Receive Date: 20050120
  Receipt Date: 20050112
  Transmission Date: 20050727
  Serious: Yes (Other)
  Sender: FDA-Public Use
  Company Number: FR-BRISTOL-MYERS SQUIBB COMPANY-12827077

PATIENT
  Age: 65 Year
  Sex: Female

DRUGS (5)
  1. ENDOXAN [Suspect]
     Indication: BREAST CANCER
  2. EPIRUBICIN [Suspect]
     Indication: BREAST CANCER
  3. FLUOROURACIL [Suspect]
     Indication: BREAST CANCER
  4. ANASTROZOLE [Concomitant]
     Dates: start: 20040401
  5. FEMARA [Concomitant]

REACTIONS (2)
  - DUPUYTREN'S CONTRACTURE [None]
  - TENOSYNOVITIS [None]
